FAERS Safety Report 26148861 (Version 1)
Quarter: 2025Q4

REPORT INFORMATION
  Report Type: Spontaneous
  Country: EU (occurrence: EU)
  Receive Date: 20251212
  Receipt Date: 20251212
  Transmission Date: 20260118
  Serious: Yes (Death, Other)
  Sender: KYOWA
  Company Number: EU-KYOWAKIRIN-2025KK023571

PATIENT

DRUGS (3)
  1. POTELIGEO [Suspect]
     Active Substance: MOGAMULIZUMAB-KPKC
     Indication: Cutaneous T-cell lymphoma
     Dosage: UNK
     Route: 065
  2. INTERFERON [Concomitant]
     Active Substance: INTERFERON
     Indication: Cutaneous T-cell lymphoma
     Dosage: UNK
     Route: 065
  3. BEXAROTENE [Concomitant]
     Active Substance: BEXAROTENE
     Indication: Cutaneous T-cell lymphoma
     Dosage: UNK
     Route: 065

REACTIONS (1)
  - Septic shock [Fatal]

NARRATIVE: CASE EVENT DATE: 20250101
